FAERS Safety Report 14135766 (Version 4)
Quarter: 2018Q1

REPORT INFORMATION
  Report Type: Report from Study
  Country: US (occurrence: US)
  Receive Date: 20171027
  Receipt Date: 20180125
  Transmission Date: 20180508
  Serious: No
  Sender: FDA-Public Use
  Company Number: US-AMGEN-USASL2016061563

PATIENT
  Age: 71 Year
  Sex: Female

DRUGS (1)
  1. REPATHA [Suspect]
     Active Substance: EVOLOCUMAB
     Indication: DYSLIPIDAEMIA
     Dosage: 140 MG, Q2WK
     Route: 065
     Dates: start: 20160507, end: 2016

REACTIONS (10)
  - Asthenia [Unknown]
  - Somnolence [Unknown]
  - Muscle spasms [Unknown]
  - Underdose [Unknown]
  - Muscular weakness [Unknown]
  - Injection site rash [Unknown]
  - Injection site erythema [Unknown]
  - Gait disturbance [Unknown]
  - Therapeutic response unexpected [Unknown]
  - Myalgia [Unknown]

NARRATIVE: CASE EVENT DATE: 2016
